FAERS Safety Report 6408351-6 (Version None)
Quarter: 2009Q4

REPORT INFORMATION
  Report Type: 
  Country: None (occurrence: None)
  Receive Date: 20091021
  Receipt Date: 20091013
  Transmission Date: 20100525
  Serious: Yes (Hospitalization)
  Sender: FDA-Public Use
  Company Number: PHHO2009US09937

PATIENT
  Sex: Male
  Weight: 58.2 kg

DRUGS (1)
  1. ICL670A ICL+DISTAB [Suspect]
     Indication: IRON OVERLOAD
     Dosage: 1500MG/DAY
     Route: 048
     Dates: start: 20090602

REACTIONS (8)
  - ABDOMINAL PAIN [None]
  - DIARRHOEA [None]
  - HYPOXIA [None]
  - NAUSEA [None]
  - PAIN [None]
  - PYREXIA [None]
  - VIRAL INFECTION [None]
  - VOMITING [None]
